FAERS Safety Report 16732380 (Version 1)
Quarter: 2019Q3

REPORT INFORMATION
  Report Type: Report from Study
  Country: None (occurrence: CO)
  Receive Date: 20190822
  Receipt Date: 20190822
  Transmission Date: 20191005
  Serious: Yes (Other)
  Sender: FDA-Public Use
  Company Number: CO-ABBVIE-19K-036-2897646-00

PATIENT
  Age: 74 Year
  Sex: Female
  Weight: 66 kg

DRUGS (1)
  1. ZEMPLAR [Suspect]
     Active Substance: PARICALCITOL
     Indication: HYPERPARATHYROIDISM SECONDARY
     Route: 048
     Dates: start: 20150828, end: 20190429

REACTIONS (2)
  - Transfusion [Recovering/Resolving]
  - Laboratory test abnormal [Recovering/Resolving]

NARRATIVE: CASE EVENT DATE: 20190805
